FAERS Safety Report 8942679 (Version 2)
Quarter: 2012Q4

REPORT INFORMATION
  Report Type: 
  Country: GB (occurrence: GB)
  Receive Date: 20121204
  Receipt Date: 20121220
  Transmission Date: 20130627
  Serious: Yes (Hospitalization)
  Sender: FDA-Public Use
  Company Number: GB-GENZYME-MOZO-1000786

PATIENT
  Age: 9 Year
  Sex: Female
  Weight: 27 kg

DRUGS (7)
  1. MOZOBIL [Suspect]
     Indication: HAEMATOPOIETIC STEM CELL MOBILISATION
     Dosage: UNK
     Route: 058
  2. LENOGRASPIN [Concomitant]
     Indication: PRODUCT USED FOR UNKNOWN INDICATION
     Dosage: UNK
     Route: 065
  3. GRANULOCYTE COLONY STIMULATING FACTOR [Concomitant]
     Indication: PRODUCT USED FOR UNKNOWN INDICATION
     Dosage: UNK
     Route: 065
  4. THIOTEPA [Concomitant]
     Indication: PRODUCT USED FOR UNKNOWN INDICATION
     Dosage: UNK
     Route: 065
     Dates: start: 201210, end: 201210
  5. COTRIMOXAZOLE [Concomitant]
     Indication: ANTIFUNGAL PROPHYLAXIS
     Dosage: 480 mg, qd
     Route: 065
     Dates: start: 20120704
  6. FLUCONAZOLE [Concomitant]
     Indication: ANTI-INFECTIVE THERAPY
     Dosage: 300 mg, qd
     Route: 065
     Dates: start: 20120704, end: 20120705
  7. ONDANSETRON [Concomitant]
     Indication: PRODUCT USED FOR UNKNOWN INDICATION
     Dosage: 4 mg, qd
     Route: 065
     Dates: start: 20120704, end: 20120707

REACTIONS (2)
  - Engraft failure [Not Recovered/Not Resolved]
  - Bone marrow failure [Not Recovered/Not Resolved]
